FAERS Safety Report 10394304 (Version 2)
Quarter: 2014Q3

REPORT INFORMATION
  Report Type: Spontaneous
  Country: BR (occurrence: BR)
  Receive Date: 20140819
  Receipt Date: 20140930
  Transmission Date: 20150326
  Serious: Yes (Other)
  Sender: FDA-Public Use
  Company Number: BR-DSJP-DSJ-2014-118439

PATIENT
  Age: 36 Year
  Sex: Male

DRUGS (4)
  1. BENICAR HCT [Suspect]
     Active Substance: HYDROCHLOROTHIAZIDE\OLMESARTAN MEDOXOMIL
     Indication: HYPERTENSION
     Dosage: 40/12.5 MG, QD
     Route: 048
     Dates: start: 2013
  2. KETOPROFEN. [Suspect]
     Active Substance: KETOPROFEN
     Indication: RENAL COLIC
     Dosage: UNK
     Route: 048
     Dates: start: 201310, end: 201310
  3. TRAMADOL [Suspect]
     Active Substance: TRAMADOL
     Indication: RENAL COLIC
     Dosage: UNK
     Route: 048
     Dates: start: 201310, end: 201310
  4. SCOPOLAMINE                        /00008701/ [Suspect]
     Active Substance: SCOPOLAMINE
     Indication: RENAL COLIC
     Dosage: UNK
     Route: 048
     Dates: start: 201310, end: 201310

REACTIONS (7)
  - Catheter placement [Unknown]
  - Urine analysis abnormal [Not Recovered/Not Resolved]
  - Renal colic [Not Recovered/Not Resolved]
  - Glucose tolerance impaired [Not Recovered/Not Resolved]
  - Hypotension [Recovered/Resolved]
  - Nephrolithiasis [Not Recovered/Not Resolved]
  - Syncope [Recovered/Resolved]

NARRATIVE: CASE EVENT DATE: 201310
